FAERS Safety Report 18282579 (Version 1)
Quarter: 2020Q3

REPORT INFORMATION
  Report Type: Spontaneous
  Country: SI (occurrence: SI)
  Receive Date: 20200918
  Receipt Date: 20200918
  Transmission Date: 20201103
  Serious: Yes (Other)
  Sender: FDA-Public Use
  Company Number: SI-JNJFOC-20200921340

PATIENT
  Age: 63 Year
  Sex: Male
  Weight: 130 kg

DRUGS (1)
  1. XARELTO [Suspect]
     Active Substance: RIVAROXABAN
     Indication: ATRIAL FIBRILLATION
     Dosage: 20 MG
     Route: 048
     Dates: start: 2017, end: 202003

REACTIONS (3)
  - Generalised oedema [Unknown]
  - Cardiac failure [Unknown]
  - Weight increased [Unknown]

NARRATIVE: CASE EVENT DATE: 2017
